FAERS Safety Report 6626376-2 (Version None)
Quarter: 2010Q1

REPORT INFORMATION
  Report Type: 
  Country: None (occurrence: None)
  Receive Date: 20100310
  Receipt Date: 20091030
  Transmission Date: 20100710
  Serious: No
  Sender: FDA-Public Use
  Company Number: US-ABBOTT-09P-163-0606341-00

PATIENT
  Age: 40 Year
  Sex: Female

DRUGS (2)
  1. LUPRON DEPOT [Suspect]
     Indication: HAEMORRHAGIC OVARIAN CYST
     Dates: start: 20091001
  2. LUPRON DEPOT [Suspect]
     Indication: PELVIC PAIN

REACTIONS (1)
  - PAIN IN EXTREMITY [None]
